FAERS Safety Report 9427104 (Version 1)
Quarter: 2013Q3

REPORT INFORMATION
  Report Type: Spontaneous
  Country: US (occurrence: US)
  Receive Date: 20130730
  Receipt Date: 20130730
  Transmission Date: 20140515
  Serious: No
  Sender: FDA-Public Use
  Company Number: US-ABBOTT-12P-163-0972935-00

PATIENT
  Sex: Female
  Weight: 70.37 kg

DRUGS (7)
  1. NIASPAN (COATED) 500MG [Suspect]
     Indication: HIGH DENSITY LIPOPROTEIN INCREASED
     Route: 048
     Dates: start: 201111, end: 201206
  2. NIASPAN (COATED) 500MG [Suspect]
     Route: 048
     Dates: start: 201207
  3. NIASPAN (COATED) 1000MG [Suspect]
     Indication: HIGH DENSITY LIPOPROTEIN INCREASED
     Dates: start: 201207, end: 201207
  4. EVISTA [Concomitant]
     Indication: PRODUCT USED FOR UNKNOWN INDICATION
  5. MVI [Concomitant]
     Indication: PRODUCT USED FOR UNKNOWN INDICATION
  6. CRESTOR [Concomitant]
     Indication: PRODUCT USED FOR UNKNOWN INDICATION
  7. CALCIUM [Concomitant]
     Indication: PRODUCT USED FOR UNKNOWN INDICATION

REACTIONS (2)
  - Muscle spasms [Recovered/Resolved]
  - Flushing [Recovered/Resolved]
